FAERS Safety Report 9439409 (Version 3)
Quarter: 2013Q4

REPORT INFORMATION
  Report Type: Spontaneous
  Country: JP (occurrence: JP)
  Receive Date: 20130805
  Receipt Date: 20131218
  Transmission Date: 20140711
  Serious: Yes (Other)
  Sender: FDA-Public Use
  Company Number: JP-BIOGENIDEC-2013BI071177

PATIENT
  Age: 69 Year
  Sex: Female

DRUGS (21)
  1. AVONEX [Suspect]
     Indication: RELAPSING-REMITTING MULTIPLE SCLEROSIS
     Route: 030
     Dates: start: 20090116, end: 20090122
  2. AVONEX [Suspect]
     Indication: RELAPSING-REMITTING MULTIPLE SCLEROSIS
     Route: 030
     Dates: start: 20090123, end: 20130404
  3. PREDONINE [Concomitant]
     Indication: RELAPSING-REMITTING MULTIPLE SCLEROSIS
     Route: 048
     Dates: start: 20090116
  4. PREDONINE [Concomitant]
     Indication: RELAPSING-REMITTING MULTIPLE SCLEROSIS
     Route: 048
     Dates: end: 20121221
  5. PREDONINE [Concomitant]
     Indication: RELAPSING-REMITTING MULTIPLE SCLEROSIS
     Route: 048
     Dates: start: 20121221, end: 20130201
  6. PREDONINE [Concomitant]
     Indication: RELAPSING-REMITTING MULTIPLE SCLEROSIS
     Route: 048
     Dates: start: 20130201, end: 20130215
  7. PREDONINE [Concomitant]
     Indication: RELAPSING-REMITTING MULTIPLE SCLEROSIS
     Route: 048
     Dates: start: 20130215
  8. LENDORMIN D [Concomitant]
     Dates: start: 20090116
  9. MAGMITT [Concomitant]
     Dates: start: 20090116
  10. TEGRETOL [Concomitant]
     Dates: start: 20090116, end: 20090422
  11. GABAPEN [Concomitant]
     Dates: start: 20090116
  12. GABAPEN [Concomitant]
  13. RIVOTRIL [Concomitant]
     Dates: start: 20090423
  14. RIVOTRIL [Concomitant]
  15. PAXIL [Concomitant]
     Dates: start: 20090521, end: 20091208
  16. BONALON [Concomitant]
  17. LIPITOR [Concomitant]
     Dates: start: 20100713
  18. LYRICA [Concomitant]
     Dates: start: 20120514, end: 20120516
  19. LYRICA [Concomitant]
     Dates: start: 20120517
  20. LYRICA [Concomitant]
     Dates: start: 20120613
  21. BROTIZOLAM OD [Concomitant]
     Dates: start: 20120501

REACTIONS (1)
  - Cellulitis [Recovered/Resolved with Sequelae]
